FAERS Safety Report 21665143 (Version 8)
Quarter: 2023Q1

REPORT INFORMATION
  Report Type: Report from Study
  Country: DE (occurrence: DE)
  Receive Date: 20221130
  Receipt Date: 20230316
  Transmission Date: 20230418
  Serious: Yes (Hospitalization)
  Sender: FDA-Public Use
  Company Number: DE-002147023-NVSC2022DE277392

PATIENT
  Age: 63 Year
  Sex: Male
  Weight: 100 kg

DRUGS (13)
  1. NISEVOKITUG [Suspect]
     Active Substance: NISEVOKITUG
     Indication: Colorectal cancer metastatic
     Dosage: 2100 MG, Q2W
     Route: 042
     Dates: start: 20221019, end: 20221116
  2. NISEVOKITUG [Suspect]
     Active Substance: NISEVOKITUG
     Dosage: 2100 MG, Q2W
     Route: 042
     Dates: start: 20221213
  3. FLUOROURACIL [Suspect]
     Active Substance: FLUOROURACIL
     Indication: Colorectal cancer metastatic
     Dosage: 5400 MG
     Route: 042
     Dates: start: 20221019
  4. FLUOROURACIL [Suspect]
     Active Substance: FLUOROURACIL
     Dosage: 900 MG, Q2W
     Route: 042
     Dates: start: 20221019, end: 20221116
  5. FLUOROURACIL [Suspect]
     Active Substance: FLUOROURACIL
     Dosage: 890 MG, Q2W
     Route: 042
     Dates: start: 20221213
  6. BEVACIZUMAB [Suspect]
     Active Substance: BEVACIZUMAB
     Indication: Colorectal cancer metastatic
     Dosage: 500 MG, Q2W
     Route: 042
     Dates: start: 20221019, end: 20221116
  7. BEVACIZUMAB [Suspect]
     Active Substance: BEVACIZUMAB
     Dosage: 400 MG, Q2W
     Route: 042
     Dates: start: 20221213
  8. IRINOTECAN [Suspect]
     Active Substance: IRINOTECAN
     Indication: Colorectal cancer metastatic
     Dosage: 400 MG, Q2W
     Route: 042
     Dates: start: 20221019, end: 20221116
  9. IRINOTECAN [Suspect]
     Active Substance: IRINOTECAN
     Dosage: 400 MG, Q2W
     Route: 042
     Dates: start: 20221213
  10. TISLELIZUMAB [Suspect]
     Active Substance: TISLELIZUMAB
     Indication: Colorectal cancer metastatic
     Dosage: 300 MG
     Route: 042
     Dates: start: 20221019
  11. LEVOTHYROXINE SODIUM [Concomitant]
     Active Substance: LEVOTHYROXINE SODIUM
     Indication: General physical condition
     Dosage: UNK
     Route: 065
  12. EDOXABAN TOSYLATE [Concomitant]
     Active Substance: EDOXABAN TOSYLATE
     Indication: General physical condition
     Dosage: UNK
     Route: 065
     Dates: start: 20210830
  13. MAPROTILINE ^NEURAX^ [Concomitant]
     Indication: General physical condition
     Dosage: UNK
     Route: 065

REACTIONS (1)
  - Influenza [Recovered/Resolved]

NARRATIVE: CASE EVENT DATE: 20221124
